FAERS Safety Report 7340898-0 (Version None)
Quarter: 2011Q1

REPORT INFORMATION
  Report Type: 
  Country: None (occurrence: None)
  Receive Date: 20110309
  Receipt Date: 20110220
  Transmission Date: 20110831
  Serious: No
  Sender: FDA-Public Use
  Company Number: US-ABBOTT-11P-163-0707924-00

PATIENT
  Sex: Female
  Weight: 56.75 kg

DRUGS (3)
  1. LUPRON DEPOT [Suspect]
     Indication: ENDOMETRIOSIS
     Dates: start: 20110123
  2. TOPAMAX [Concomitant]
     Indication: MIGRAINE
  3. ZOVIRAX [Concomitant]
     Indication: HERPES SIMPLEX

REACTIONS (1)
  - ABDOMINAL PAIN [None]
